FAERS Safety Report 8992479 (Version 1)
Quarter: 2012Q4

REPORT INFORMATION
  Report Type: 
  Country: CA (occurrence: CA)
  Receive Date: 20121231
  Receipt Date: 20121231
  Transmission Date: 20130627
  Serious: Yes (Other)
  Sender: FDA-Public Use
  Company Number: PHHY2012CA120968

PATIENT
  Sex: Male

DRUGS (6)
  1. TASIGNA [Suspect]
     Indication: CHRONIC MYELOID LEUKAEMIA
     Dosage: 300 mg, BID
     Route: 048
  2. SIMVASTATIN [Concomitant]
  3. ELTROXIN [Concomitant]
  4. EZETROL [Concomitant]
  5. DOCUSATE [Concomitant]
  6. ZOPICLONE [Concomitant]

REACTIONS (3)
  - Diabetes mellitus [Unknown]
  - Constipation [Unknown]
  - Diarrhoea [Unknown]
